FAERS Safety Report 8998444 (Version 2)
Quarter: 2013Q2

REPORT INFORMATION
  Report Type: Spontaneous
  Country: IN (occurrence: IN)
  Receive Date: 20130103
  Receipt Date: 20130520
  Transmission Date: 20140414
  Serious: Yes (Other)
  Sender: FDA-Public Use
  Company Number: IN-PFIZER INC-2012332484

PATIENT
  Sex: 0

DRUGS (11)
  1. PHENYTOIN [Suspect]
     Indication: CONVULSION
     Dosage: 200 MG, 2X/DAY
     Route: 064
  2. PHENYTOIN SODIUM [Suspect]
     Indication: CONVULSION
     Route: 064
  3. VALPROATE [Suspect]
     Indication: CONVULSION
     Dosage: 400 MG, 3X/DAY
     Route: 064
  4. VALPROATE [Suspect]
     Dosage: 1,500 MG, OVER 30 MINUTES.
  5. VALPROATE [Suspect]
     Dosage: 400 MG, 3X/DAY
  6. ALPHA-METHYLDOPA [Suspect]
     Indication: HYPERTENSION
     Dosage: 500 MG, 3X/DAY
     Route: 064
  7. DIAZEPAM [Suspect]
     Indication: CONVULSION
     Dosage: 10 MG, UNK
     Route: 064
  8. MIDAZOLAM [Suspect]
     Indication: CONVULSION
     Dosage: 2 MG, UNK
     Route: 064
  9. MAGNESIUM SULFATE [Suspect]
     Dosage: 10 G, UNK
     Route: 064
  10. MAGNESIUM SULFATE [Suspect]
     Dosage: 5 G, EVERY 4 HRS
  11. LABETALOL [Suspect]
     Indication: HYPERTENSION
     Dosage: (10, 10, AND 5 MG) OVER 15 MINUTES
     Route: 064

REACTIONS (4)
  - Maternal exposure timing unspecified [Unknown]
  - Cyanosis neonatal [Unknown]
  - Respiratory disorder neonatal [Recovered/Resolved]
  - Grimacing [Unknown]
